FAERS Safety Report 4377546-8 (Version None)
Quarter: 2004Q2

REPORT INFORMATION
  Report Type: 
  Country: None (occurrence: None)
  Receive Date: 20040602
  Receipt Date: 20031001
  Transmission Date: 20050107
  Serious: Yes (Life-Threatening, Other)
  Sender: FDA-Public Use
  Company Number: US-JNJFOC-20031003362

PATIENT
  Age: 32 Year
  Sex: Male
  Weight: 81.1939 kg

DRUGS (4)
  1. PROPULSID [Suspect]
     Indication: GASTROOESOPHAGEAL REFLUX DISEASE
     Dosage: 10 MG
     Dates: start: 19971121
  2. PRILOSEC [Concomitant]
  3. PREDNISONE TAB [Concomitant]
  4. AZULFIDINE () SULFASALIZINE [Concomitant]

REACTIONS (8)
  - CARDIAC DISORDER [None]
  - ELECTROCARDIOGRAM QT PROLONGED [None]
  - HEADACHE [None]
  - PALPITATIONS [None]
  - TACHYCARDIA [None]
  - TORSADE DE POINTES [None]
  - VENTRICULAR FIBRILLATION [None]
  - VENTRICULAR TACHYCARDIA [None]
